FAERS Safety Report 7091198-8 (Version None)
Quarter: 2010Q4

REPORT INFORMATION
  Report Type: 
  Country: None (occurrence: None)
  Receive Date: 20101109
  Receipt Date: 20101028
  Transmission Date: 20110411
  Serious: Yes (Other)
  Sender: FDA-Public Use
  Company Number: PHHY2010JP58222

PATIENT
  Age: 37 Year
  Sex: Female

DRUGS (15)
  1. NEORAL [Suspect]
     Indication: LUPUS NEPHRITIS
     Dosage: 100 MG, BID
     Route: 048
     Dates: start: 20100930
  2. NEORAL [Suspect]
     Indication: NEPHROTIC SYNDROME
  3. BAKTAR [Suspect]
     Indication: PROPHYLAXIS
     Dosage: 2G
     Route: 048
     Dates: start: 20101002, end: 20101005
  4. PERSANTIN [Suspect]
     Indication: LUPUS NEPHRITIS
     Dosage: 300 MG
     Route: 048
     Dates: start: 20101002, end: 20101005
  5. TACROLIMUS [Concomitant]
     Indication: LUPUS NEPHRITIS
     Route: 048
  6. PREDNISOLONE [Concomitant]
     Indication: SYSTEMIC LUPUS ERYTHEMATOSUS
     Route: 048
  7. STEROID [Concomitant]
     Indication: SYSTEMIC LUPUS ERYTHEMATOSUS
  8. OMEPRAL [Concomitant]
     Indication: GASTRIC ULCER
     Dosage: 20 MG
     Route: 048
  9. MICARDIS [Concomitant]
     Indication: HYPERTENSION
     Dosage: 80 MG
     Route: 048
  10. BONALON [Concomitant]
     Indication: OSTEOPOROSIS
     Dosage: 35 MG
     Route: 048
  11. SEDIEL [Concomitant]
     Indication: DEPRESSION
     Dosage: 20 MG
     Route: 048
  12. TOFRANIL [Concomitant]
     Dosage: 60 MG
     Route: 048
  13. FLUITRAN [Concomitant]
     Indication: NEPHROTIC SYNDROME
     Dosage: 4MG
     Route: 048
     Dates: start: 20090904
  14. PREDNISOLONE [Concomitant]
     Indication: LUPUS NEPHRITIS
     Dosage: 60 MG
     Route: 042
     Dates: start: 20090822
  15. LASIX [Concomitant]
     Indication: NEPHROTIC SYNDROME
     Dosage: 80 MG
     Route: 042
     Dates: start: 20090822

REACTIONS (5)
  - ANAEMIA [None]
  - BLOOD LACTATE DEHYDROGENASE INCREASED [None]
  - HEPATIC ENZYME INCREASED [None]
  - PANCYTOPENIA [None]
  - PLATELET COUNT DECREASED [None]
